FAERS Safety Report 9848652 (Version 1)
Quarter: 2014Q1

REPORT INFORMATION
  Report Type: Spontaneous
  Country: US (occurrence: None)
  Receive Date: 20140124
  Receipt Date: 20140124
  Transmission Date: 20141002
  Serious: Yes (Other)
  Sender: FDA-Public Use
  Company Number: None

PATIENT
  Age: 45 Year
  Sex: Female

DRUGS (3)
  1. ARIMIDEX [Suspect]
     Indication: BREAST CANCER
     Route: 048
  2. IBUPROFEN [Concomitant]
  3. DIPHENHYDRAMINE [Concomitant]

REACTIONS (3)
  - Bone pain [None]
  - Arthralgia [None]
  - Arthralgia [None]
